FAERS Safety Report 6140512-6 (Version None)
Quarter: 2009Q1

REPORT INFORMATION
  Report Type: 
  Country: None (occurrence: None)
  Receive Date: 20090331
  Receipt Date: 20090325
  Transmission Date: 20090719
  Serious: Yes (Death)
  Sender: FDA-Public Use
  Company Number: 2009-193338-NL

PATIENT
  Age: 78 Year
  Sex: Female

DRUGS (2)
  1. MIRTAZAPINE [Suspect]
  2. ZYPREXA [Suspect]
     Dosage: 2.5 MG DAILY

REACTIONS (2)
  - DRUG TOXICITY [None]
  - PNEUMONIA [None]
